FAERS Safety Report 9973049 (Version 1)
Quarter: 2014Q1

REPORT INFORMATION
  Report Type: Report from Study
  Country: PR (occurrence: PR)
  Receive Date: 20140306
  Receipt Date: 20140306
  Transmission Date: 20141002
  Serious: No
  Sender: FDA-Public Use
  Company Number: PR-ABBVIE-13P-131-1157281-00

PATIENT
  Sex: Female

DRUGS (5)
  1. HUMIRA [Suspect]
     Indication: PRODUCT USED FOR UNKNOWN INDICATION
     Route: 058
     Dates: start: 20130801, end: 20131010
  2. TUPROL [Concomitant]
     Indication: HYPERTENSION
     Route: 048
  3. HYZAAR [Concomitant]
     Indication: HYPERTENSION
     Route: 048
  4. ULTRACET [Concomitant]
     Indication: PAIN
     Route: 048
  5. NOVOLOG MIX [Concomitant]
     Indication: DIABETES MELLITUS
     Route: 058

REACTIONS (1)
  - Drug ineffective [Recovered/Resolved]
